FAERS Safety Report 24457612 (Version 2)
Quarter: 2024Q4

REPORT INFORMATION
  Report Type: Spontaneous
  Country: US (occurrence: US)
  Receive Date: 20241018
  Receipt Date: 20241122
  Transmission Date: 20250115
  Serious: Yes (Hospitalization, Other)
  Sender: NOVO NORDISK
  Company Number: US-NOVOPROD-1296423

PATIENT
  Age: 66 Year
  Sex: Male

DRUGS (2)
  1. OZEMPIC [Suspect]
     Active Substance: SEMAGLUTIDE
     Indication: Type 2 diabetes mellitus
     Dosage: 2 MG, QW(STARTED IN SUMMER 2022)
     Route: 058
     Dates: start: 2022
  2. JARDIANCE [Concomitant]
     Active Substance: EMPAGLIFLOZIN
     Indication: Type 2 diabetes mellitus
     Dosage: UNK

REACTIONS (7)
  - Coronary artery occlusion [Recovering/Resolving]
  - Haemorrhage [Unknown]
  - Pulmonary oedema [Recovered/Resolved]
  - Incisional hernia [Not Recovered/Not Resolved]
  - Nerve injury [Not Recovered/Not Resolved]
  - Cough [Recovered/Resolved]
  - Weight decreased [Unknown]

NARRATIVE: CASE EVENT DATE: 20231201
